FAERS Safety Report 6244899-5 (Version None)
Quarter: 2009Q2

REPORT INFORMATION
  Report Type: 
  Country: None (occurrence: None)
  Receive Date: 20090623
  Receipt Date: 20090623
  Transmission Date: 20091009
  Serious: No
  Sender: FDA-Public Use
  Company Number: None

PATIENT
  Age: 65 Year
  Sex: Female
  Weight: 59.8748 kg

DRUGS (1)
  1. CLIMERA [Suspect]

REACTIONS (3)
  - APPLICATION SITE REACTION [None]
  - DERMATITIS CONTACT [None]
  - PRODUCT SUBSTITUTION ISSUE [None]
